FAERS Safety Report 16413350 (Version 5)
Quarter: 2022Q4

REPORT INFORMATION
  Report Type: Spontaneous
  Country: US (occurrence: None)
  Receive Date: 20190611
  Receipt Date: 20221104
  Transmission Date: 20230113
  Serious: Yes (Hospitalization, Other)
  Sender: FDA-Public Use
  Company Number: 2018SF65039

PATIENT
  Age: 20528 Day
  Sex: Male
  Weight: 127 kg

DRUGS (62)
  1. PRILOSEC OTC [Suspect]
     Active Substance: OMEPRAZOLE MAGNESIUM
     Indication: Gastrooesophageal reflux disease
     Route: 048
     Dates: start: 20100101, end: 20181231
  2. PRILOSEC OTC [Suspect]
     Active Substance: OMEPRAZOLE MAGNESIUM
     Indication: Gastrooesophageal reflux disease
     Route: 048
     Dates: start: 201001, end: 201812
  3. PRILOSEC [Suspect]
     Active Substance: OMEPRAZOLE MAGNESIUM
     Route: 048
  4. PRILOSEC [Suspect]
     Active Substance: OMEPRAZOLE MAGNESIUM
     Dosage: GENERIC
     Route: 065
  5. PROTONIX [Suspect]
     Active Substance: PANTOPRAZOLE SODIUM
     Indication: Gastrooesophageal reflux disease
     Route: 065
     Dates: start: 20100819, end: 20190205
  6. PROTONIX [Suspect]
     Active Substance: PANTOPRAZOLE SODIUM
     Indication: Gastrooesophageal reflux disease
     Route: 065
     Dates: start: 20100819
  7. ACIPHEX [Suspect]
     Active Substance: RABEPRAZOLE SODIUM
     Route: 065
  8. ALBUTEROL [Concomitant]
     Active Substance: ALBUTEROL
  9. XANAX [Concomitant]
     Active Substance: ALPRAZOLAM
  10. LOTREL [Concomitant]
     Active Substance: AMLODIPINE BESYLATE\BENAZEPRIL HYDROCHLORIDE
  11. ASPIRIN [Concomitant]
     Active Substance: ASPIRIN
     Indication: Analgesic therapy
     Dates: start: 2016
  12. COREG [Concomitant]
     Active Substance: CARVEDILOL
  13. CELEXA [Concomitant]
     Active Substance: CITALOPRAM HYDROBROMIDE
  14. FLEXERIL [Concomitant]
     Active Substance: CYCLOBENZAPRINE HYDROCHLORIDE
  15. CATAPRES [Concomitant]
     Active Substance: CLONIDINE HYDROCHLORIDE
  16. PENNSAID [Concomitant]
     Active Substance: DICLOFENAC SODIUM
  17. TRICOR [Concomitant]
     Active Substance: FENOFIBRATE
  18. NEURONTIN [Concomitant]
     Active Substance: GABAPENTIN
  19. AMARYL [Concomitant]
     Active Substance: GLIMEPIRIDE
  20. APRESOLINE HYDROCHLORIDE [Concomitant]
     Active Substance: HYDRALAZINE HYDROCHLORIDE
  21. PLAQUENIL [Concomitant]
     Active Substance: HYDROXYCHLOROQUINE SULFATE
  22. LANTUS [Concomitant]
     Active Substance: INSULIN GLARGINE
  23. IMDUR [Concomitant]
     Active Substance: ISOSORBIDE MONONITRATE
  24. XOPENEX [Concomitant]
     Active Substance: LEVALBUTEROL HYDROCHLORIDE
  25. AMLODIPINE [Concomitant]
     Active Substance: AMLODIPINE BESYLATE
     Indication: Analgesic therapy
     Dates: start: 2013
  26. ACETAMINOPHEN\OXYCODONE HYDROCHLORIDE [Concomitant]
     Active Substance: ACETAMINOPHEN\OXYCODONE HYDROCHLORIDE
     Indication: Analgesic therapy
     Dates: start: 2011
  27. LEVOFLOXACIN [Concomitant]
     Active Substance: LEVOFLOXACIN
     Indication: Infection
     Dates: start: 2012
  28. AZITHROMYCIN [Concomitant]
     Active Substance: AZITHROMYCIN
     Indication: Infection
     Dates: start: 2013, end: 2018
  29. AZITHROMYCIN [Concomitant]
     Active Substance: AZITHROMYCIN
     Indication: Blood cholesterol
     Dates: start: 2013, end: 2018
  30. VITAMIN D3 [Concomitant]
     Active Substance: CHOLECALCIFEROL
     Indication: Vitamin supplementation
     Dates: start: 2018
  31. POTASSIUM CHLORIDE [Concomitant]
     Active Substance: POTASSIUM CHLORIDE
     Indication: Mineral supplementation
     Dates: start: 2013
  32. FAMOTIDINE [Concomitant]
     Active Substance: FAMOTIDINE
     Dosage: OTC
     Dates: start: 2014
  33. CALCIUM CARBONATE [Concomitant]
     Active Substance: CALCIUM CARBONATE
     Dosage: OTC
     Dates: start: 2014
  34. MAGNESIUM HYDROXIDE [Concomitant]
     Active Substance: MAGNESIUM HYDROXIDE
     Dosage: OTC
     Dates: start: 2014
  35. FUROSEMIDE [Concomitant]
     Active Substance: FUROSEMIDE
     Indication: Blood pressure abnormal
     Dates: start: 2012
  36. ATORVASTATIN [Concomitant]
     Active Substance: ATORVASTATIN
     Indication: Pain
     Dates: start: 2013
  37. ULTRAM [Concomitant]
     Active Substance: TRAMADOL HYDROCHLORIDE
  38. LIDODERM [Concomitant]
     Active Substance: LIDOCAINE
  39. NITROGLYCERIN [Concomitant]
     Active Substance: NITROGLYCERIN
  40. VICODIN [Concomitant]
     Active Substance: ACETAMINOPHEN\HYDROCODONE BITARTRATE
  41. HYDROCHLOROTHIAZIDE [Concomitant]
     Active Substance: HYDROCHLOROTHIAZIDE
  42. METFORMIN [Concomitant]
     Active Substance: METFORMIN HYDROCHLORIDE
  43. CYCLOBENZAPRINE [Concomitant]
     Active Substance: CYCLOBENZAPRINE
  44. OXYGEN [Concomitant]
     Active Substance: OXYGEN
  45. GLIPIZIDE [Concomitant]
     Active Substance: GLIPIZIDE
  46. CITALOPRAM [Concomitant]
     Active Substance: CITALOPRAM HYDROBROMIDE
  47. LEVEMIR [Concomitant]
     Active Substance: INSULIN DETEMIR
  48. KLONOPIN [Concomitant]
     Active Substance: CLONAZEPAM
  49. TARKA [Concomitant]
     Active Substance: TRANDOLAPRIL\VERAPAMIL HYDROCHLORIDE
  50. ETODOLAC [Concomitant]
     Active Substance: ETODOLAC
  51. INSULIN LISPRO [Concomitant]
     Active Substance: INSULIN LISPRO
  52. SODIUM CHLORIDE [Concomitant]
     Active Substance: SODIUM CHLORIDE
  53. ARIPIPRAZOLE [Concomitant]
     Active Substance: ARIPIPRAZOLE
  54. PROPOFOL [Concomitant]
     Active Substance: PROPOFOL
  55. SUCCINYLCHOLINE [Concomitant]
     Active Substance: SUCCINYLCHOLINE
  56. ROCURONIUM BROMIDE [Concomitant]
     Active Substance: ROCURONIUM BROMIDE
  57. LOFIBRA [Concomitant]
     Active Substance: FENOFIBRATE
  58. PRINIVIL [Concomitant]
     Active Substance: LISINOPRIL
  59. DICLOFENAC SODIUM [Concomitant]
     Active Substance: DICLOFENAC SODIUM
  60. LOPRESSOR [Concomitant]
     Active Substance: METOPROLOL TARTRATE
  61. VALIUM [Concomitant]
     Active Substance: DIAZEPAM
  62. POTASSIUM [Concomitant]
     Active Substance: POTASSIUM

REACTIONS (9)
  - Chronic kidney disease [Not Recovered/Not Resolved]
  - Acute kidney injury [Not Recovered/Not Resolved]
  - End stage renal disease [Unknown]
  - Nephrogenic anaemia [Unknown]
  - Renal injury [Unknown]
  - Renal failure [Unknown]
  - Tubulointerstitial nephritis [Unknown]
  - Dyspepsia [Unknown]
  - Gastrooesophageal reflux disease [Not Recovered/Not Resolved]

NARRATIVE: CASE EVENT DATE: 20180301
